FAERS Safety Report 7004004-4 (Version None)
Quarter: 2010Q3

REPORT INFORMATION
  Report Type: 
  Country: None (occurrence: None)
  Receive Date: 20100917
  Receipt Date: 20100913
  Transmission Date: 20110219
  Serious: Yes (Hospitalization)
  Sender: FDA-Public Use
  Company Number: 2010MA002571

PATIENT
  Age: 58 Year
  Sex: Female
  Weight: 83.9 kg

DRUGS (17)
  1. OXYCODONE AND ACETAMINOPHEN [Suspect]
     Indication: ILL-DEFINED DISORDER
     Dosage: PO
     Route: 048
     Dates: start: 20060312, end: 20060330
  2. PACLITAXEL [Suspect]
     Indication: NON-SMALL CELL LUNG CANCER
     Dosage: 369 MG; IV
     Route: 042
     Dates: start: 20060329
  3. CARBOPLATIN [Suspect]
     Indication: NON-SMALL CELL LUNG CANCER
     Dosage: 692.7 MG; IV
     Route: 042
     Dates: start: 20060329
  4. SINGULAIR [Concomitant]
  5. ZOCOR [Concomitant]
  6. ULTRAM [Concomitant]
  7. DURAGESIC-100 [Concomitant]
  8. ZOLOFT [Concomitant]
  9. PROTONIX [Concomitant]
  10. REGLAN [Concomitant]
  11. AMBIEN [Concomitant]
  12. DEXAMETHASONE [Concomitant]
  13. DIPHENHYDRAMINE [Concomitant]
  14. CIMETIDINE [Concomitant]
  15. ONDANSETRON [Concomitant]
  16. EMEND [Concomitant]
  17. PREV MEDS [Concomitant]

REACTIONS (3)
  - ACCIDENTAL OVERDOSE [None]
  - DEPRESSED LEVEL OF CONSCIOUSNESS [None]
  - SOMNOLENCE [None]
